FAERS Safety Report 21903843 (Version 1)
Quarter: 2023Q1

REPORT INFORMATION
  Report Type: Spontaneous
  Country: US (occurrence: US)
  Receive Date: 20230124
  Receipt Date: 20230124
  Transmission Date: 20230418
  Serious: No
  Sender: FDA-Public Use
  Company Number: US-PFIZER INC-202300031477

PATIENT
  Age: 55 Year
  Sex: Female
  Weight: 74.84 kg

DRUGS (7)
  1. PRISTIQ EXTENDED-RELEASE [Suspect]
     Active Substance: DESVENLAFAXINE SUCCINATE
     Dosage: UNK, 1X/DAY
  2. TEGRETOL [Concomitant]
     Active Substance: CARBAMAZEPINE
     Indication: Bipolar disorder
     Dosage: 200 MG, 2X/DAY
     Dates: start: 202210
  3. BUSPAR [Concomitant]
     Active Substance: BUSPIRONE HYDROCHLORIDE
     Indication: Anxiety
     Dosage: 15 MG, 2X/DAY
  4. ABILIFY [Concomitant]
     Active Substance: ARIPIPRAZOLE
     Indication: Depression
     Dosage: 5 MG, 1X/DAY
     Dates: start: 202211
  5. DOXEPIN [Concomitant]
     Active Substance: DOXEPIN
     Indication: Sleep disorder
     Dosage: 100 MG, 1X/DAY
     Dates: start: 202208
  6. DOXEPIN [Concomitant]
     Active Substance: DOXEPIN
     Indication: Depression
  7. DOXEPIN [Concomitant]
     Active Substance: DOXEPIN
     Indication: Anxiety

REACTIONS (1)
  - Drug withdrawal syndrome [Unknown]
